FAERS Safety Report 18076805 (Version 4)
Quarter: 2022Q4

REPORT INFORMATION
  Report Type: Spontaneous
  Country: US (occurrence: US)
  Receive Date: 20200728
  Receipt Date: 20221125
  Transmission Date: 20230112
  Serious: Yes (Other)
  Sender: FDA-Public Use
  Company Number: US-TEVA-2020-US-1805655

PATIENT
  Age: 52 Year
  Sex: Male

DRUGS (3)
  1. FENTORA [Suspect]
     Active Substance: FENTANYL CITRATE
     Indication: Bone cancer
     Route: 002
  2. FENTORA [Suspect]
     Active Substance: FENTANYL CITRATE
     Route: 002
  3. FENTORA [Suspect]
     Active Substance: FENTANYL CITRATE
     Route: 002

REACTIONS (4)
  - Neoplasm malignant [Unknown]
  - Loss of consciousness [Unknown]
  - Pain [Unknown]
  - Product availability issue [Unknown]

NARRATIVE: CASE EVENT DATE: 20221001
